FAERS Safety Report 6892757-5 (Version None)
Quarter: 2010Q3

REPORT INFORMATION
  Report Type: 
  Country: None (occurrence: None)
  Receive Date: 20100731
  Receipt Date: 20080910
  Transmission Date: 20110219
  Serious: No
  Sender: FDA-Public Use
  Company Number: US-PFIZER INC-2008075438

PATIENT
  Sex: Female
  Weight: 69.1 kg

DRUGS (16)
  1. NORVASC [Suspect]
     Indication: HYPERTENSION
     Route: 048
     Dates: start: 20030101
  2. HYDROCHLOROTHIAZIDE [Concomitant]
  3. ACETYLSALICYLIC ACID SRT [Concomitant]
  4. FLUDROCORTISONE [Concomitant]
  5. LEVOTHYROXINE SODIUM [Concomitant]
  6. FUROSEMIDE [Concomitant]
  7. PROGRAF [Concomitant]
  8. HALOPERIDOL [Concomitant]
  9. NEURONTIN [Concomitant]
  10. ALL OTHER THERAPEUTIC PRODUCTS [Concomitant]
  11. MAGNESIUM OXIDE [Concomitant]
  12. POTASSIUM CHLORIDE [Concomitant]
  13. LISINOPRIL [Concomitant]
  14. FOSAMAX [Concomitant]
  15. HUMALOG [Concomitant]
  16. LANTUS [Concomitant]

REACTIONS (1)
  - BLOOD PRESSURE INADEQUATELY CONTROLLED [None]
